FAERS Safety Report 21247197 (Version 1)
Quarter: 2022Q3

REPORT INFORMATION
  Report Type: Spontaneous
  Country: US (occurrence: None)
  Receive Date: 20220823
  Receipt Date: 20220823
  Transmission Date: 20221027
  Serious: No
  Sender: FDA-Public Use
  Company Number: None

PATIENT
  Age: 30 Year

DRUGS (2)
  1. SUMATRIPTAN [Suspect]
     Active Substance: SUMATRIPTAN
  2. METOPROLOL [Suspect]
     Active Substance: METOPROLOL

REACTIONS (2)
  - Drug ineffective [None]
  - Fatigue [None]

NARRATIVE: CASE EVENT DATE: 20220823
